FAERS Safety Report 5179182-2 (Version None)
Quarter: 2006Q4

REPORT INFORMATION
  Report Type: 
  Country: None (occurrence: None)
  Receive Date: 20061219
  Receipt Date: 20061109
  Transmission Date: 20070319
  Serious: Yes (Hospitalization)
  Sender: FDA-Public Use
  Company Number: GB-SANOFI-SYNTHELABO-F01200602303

PATIENT
  Sex: Female
  Weight: 74 kg

DRUGS (7)
  1. DEXAMETHASONE [Concomitant]
     Route: 042
     Dates: start: 20060929, end: 20061005
  2. GRANISETRON [Concomitant]
     Route: 042
     Dates: start: 20060929, end: 20061005
  3. CETUXIMAB [Suspect]
     Dosage: 400 MG/M2 LOADING DOSE FOLLOWED BY A WEEKLY INFUSION OF 250 MG/M2
     Route: 041
     Dates: start: 20061005, end: 20061005
  4. CAPECITABINE [Suspect]
     Dosage: 1000 MG/M2 BID DAYS 1-14
     Route: 048
     Dates: start: 20061005
  5. OXALIPLATIN [Suspect]
     Indication: COLORECTAL CANCER METASTATIC
     Route: 041
     Dates: start: 20061005, end: 20061005
  6. ACETAMINOPHEN [Concomitant]
     Route: 048
     Dates: start: 20060929, end: 20061005
  7. CHLORPHENIRAMINE MALEATE [Concomitant]
     Route: 042
     Dates: start: 20060929, end: 20061005

REACTIONS (5)
  - BLOOD SODIUM DECREASED [None]
  - CEREBELLAR ATROPHY [None]
  - CEREBRAL ISCHAEMIA [None]
  - CEREBROVASCULAR DISORDER [None]
  - LOSS OF CONSCIOUSNESS [None]
